FAERS Safety Report 15634478 (Version 1)
Quarter: 2018Q4

REPORT INFORMATION
  Report Type: Spontaneous
  Country: US (occurrence: US)
  Receive Date: 20181119
  Receipt Date: 20181119
  Transmission Date: 20190205
  Serious: Yes (Life-Threatening, Hospitalization)
  Sender: FDA-Public Use
  Company Number: None

PATIENT
  Age: 77 Year
  Sex: Male

DRUGS (1)
  1. CESIUM CHLORIDE. [Suspect]
     Active Substance: CESIUM CHLORIDE
     Indication: PROSTATE CANCER
     Route: 048

REACTIONS (4)
  - Torsade de pointes [None]
  - Ventricular tachycardia [None]
  - Product dispensing issue [None]
  - Syncope [None]

NARRATIVE: CASE EVENT DATE: 20181015
